FAERS Safety Report 23893984 (Version 1)
Quarter: 2024Q2

REPORT INFORMATION
  Report Type: Spontaneous
  Country: US (occurrence: None)
  Receive Date: 20240524
  Receipt Date: 20240524
  Transmission Date: 20240716
  Serious: No
  Sender: FDA-Public Use
  Company Number: 2024A120691

PATIENT
  Sex: Male

DRUGS (1)
  1. DAPAGLIFLOZIN PROPANEDIOL [Suspect]
     Active Substance: DAPAGLIFLOZIN PROPANEDIOL
     Indication: Hepatocellular carcinoma
     Dosage: UNKNOWN UNKNOWN
     Route: 048

REACTIONS (2)
  - Ascites [Unknown]
  - General physical health deterioration [Unknown]
